FAERS Safety Report 25612813 (Version 2)
Quarter: 2025Q3

REPORT INFORMATION
  Report Type: Report from Study
  Country: CA (occurrence: CA)
  Receive Date: 20250728
  Receipt Date: 20250731
  Transmission Date: 20251020
  Serious: Yes (Other)
  Sender: UCB
  Company Number: CA-UCBSA-2025044941

PATIENT
  Sex: Female

DRUGS (4)
  1. CERTOLIZUMAB PEGOL [Suspect]
     Active Substance: CERTOLIZUMAB PEGOL
     Indication: Ankylosing spondylitis
     Dosage: 200 MILLIGRAM, EV 2 WEEKS(QOW)
     Route: 058
     Dates: start: 20220907, end: 2025
  2. PLAQUENIL [Concomitant]
     Active Substance: HYDROXYCHLOROQUINE SULFATE
     Indication: Product used for unknown indication
  3. NAPROXEN [Concomitant]
     Active Substance: NAPROXEN
     Indication: Product used for unknown indication
  4. INDOMETHACIN [Concomitant]
     Active Substance: INDOMETHACIN
     Indication: Product used for unknown indication

REACTIONS (1)
  - Ankylosing spondylitis [Unknown]
